FAERS Safety Report 23718280 (Version 1)
Quarter: 2024Q2

REPORT INFORMATION
  Report Type: Spontaneous
  Country: US (occurrence: None)
  Receive Date: 20240406
  Receipt Date: 20240406
  Transmission Date: 20240716
  Serious: No
  Sender: FDA-Public Use
  Company Number: None

PATIENT
  Age: 18 Year
  Sex: Male
  Weight: 104.4 kg

DRUGS (18)
  1. ZEPBOUND [Suspect]
     Active Substance: TIRZEPATIDE
     Indication: Obesity
     Dosage: OTHER FREQUENCY : ONCE A WEEK;?
     Route: 058
  2. HYDROCORTISONE [Concomitant]
     Active Substance: HYDROCORTISONE
  3. SOLU-CORTEF [Concomitant]
     Active Substance: HYDROCORTISONE SODIUM SUCCINATE
  4. DESMOPRESSIN [Concomitant]
     Active Substance: DESMOPRESSIN
  5. SYNTHROID [Concomitant]
     Active Substance: LEVOTHYROXINE SODIUM
  6. Fludocortisone [Concomitant]
  7. BUPROPION [Concomitant]
     Active Substance: BUPROPION
  8. METHYLPHENIDATE [Concomitant]
     Active Substance: METHYLPHENIDATE
  9. QULIPTA [Concomitant]
     Active Substance: ATOGEPANT
  10. FAMOTIDINE [Concomitant]
     Active Substance: FAMOTIDINE
  11. NORDITROPIN [Concomitant]
     Active Substance: SOMATROPIN
  12. Testosterone Cyopinate [Concomitant]
  13. BOTOX [Concomitant]
     Active Substance: ONABOTULINUMTOXINA
  14. ZOLOFT [Concomitant]
     Active Substance: SERTRALINE HYDROCHLORIDE
  15. Vitamin D Soft Gels [Concomitant]
  16. LORATADINE [Concomitant]
     Active Substance: LORATADINE
  17. SENNA [Concomitant]
     Active Substance: SENNA LEAF\SENNOSIDES\SENNOSIDES A AND B
  18. DOCUSATE SODIUM [Concomitant]
     Active Substance: DOCUSATE SODIUM

REACTIONS (16)
  - Bradycardia [None]
  - Dizziness [None]
  - Vomiting [None]
  - Diarrhoea [None]
  - Hyperhidrosis [None]
  - Dyspnoea [None]
  - Oxygen saturation decreased [None]
  - Blood pressure decreased [None]
  - Dehydration [None]
  - Blood glucose decreased [None]
  - Nausea [None]
  - Eructation [None]
  - Ventricular dysfunction [None]
  - Hypophagia [None]
  - Abdominal pain upper [None]
  - Weight decreased [None]

NARRATIVE: CASE EVENT DATE: 20240226
